FAERS Safety Report 10215326 (Version 2)
Quarter: 2014Q2

REPORT INFORMATION
  Report Type: Spontaneous
  Country: PL (occurrence: PL)
  Receive Date: 20140603
  Receipt Date: 20140611
  Transmission Date: 20141212
  Serious: Yes (Hospitalization)
  Sender: FDA-Public Use
  Company Number: PHHY2014PL067228

PATIENT
  Age: 17 Year
  Sex: Female
  Weight: 55 kg

DRUGS (3)
  1. AMLODIPINE [Suspect]
     Dosage: 600 MG, UNK
  2. CAPTOPRIL [Suspect]
     Dosage: 875 MG, UNK
  3. BISOPROLOL [Suspect]
     Dosage: 125 MG, UNK

REACTIONS (29)
  - Cardiac failure acute [Recovered/Resolved]
  - Electrocardiogram ST segment elevation [Recovered/Resolved]
  - Cardiomegaly [Recovered/Resolved]
  - Cyanosis [Recovered/Resolved]
  - Circulatory collapse [Recovered/Resolved]
  - Respiratory failure [Recovered/Resolved]
  - Dyspnoea [Recovered/Resolved]
  - Hypopnoea [Recovered/Resolved]
  - Metabolic acidosis [Recovered/Resolved]
  - Anuria [Recovered/Resolved]
  - Hyperglycaemia [Recovered/Resolved]
  - Multi-organ failure [Recovered/Resolved]
  - Pulmonary oedema [Recovered/Resolved]
  - Hypothermia [Recovered/Resolved]
  - Suicide attempt [Unknown]
  - Dizziness [Recovered/Resolved]
  - Abdominal pain [Recovered/Resolved]
  - Asthenia [Recovered/Resolved]
  - Peripheral coldness [Recovered/Resolved]
  - Toxicity to various agents [Recovered/Resolved]
  - Intentional overdose [Unknown]
  - Acute respiratory distress syndrome [Recovered/Resolved]
  - Gastrointestinal haemorrhage [Recovered/Resolved]
  - Generalised oedema [Recovered/Resolved]
  - Wheezing [Recovered/Resolved]
  - Rales [Recovered/Resolved]
  - Heart sounds abnormal [Recovered/Resolved]
  - Ventricular dysfunction [Recovered/Resolved]
  - Cardiopulmonary failure [Recovered/Resolved]
